FAERS Safety Report 14691954 (Version 2)
Quarter: 2018Q4

REPORT INFORMATION
  Report Type: Spontaneous
  Country: JP (occurrence: JP)
  Receive Date: 20180329
  Receipt Date: 20181229
  Transmission Date: 20190204
  Serious: Yes (Hospitalization)
  Sender: FDA-Public Use
  Company Number: JP-AMGEN-JPNSP2018042023

PATIENT
  Age: 36 Year
  Sex: Male
  Weight: 53 kg

DRUGS (13)
  1. PRALIA [Suspect]
     Active Substance: DENOSUMAB
     Indication: OSTEOPOROSIS
     Dosage: 60 MG, Q6MO
     Route: 058
  2. PREDONINE [Suspect]
     Active Substance: PREDNISOLONE
     Dosage: 7.5 UNK, QD
     Route: 048
     Dates: start: 20121226
  3. PREDONINE [Suspect]
     Active Substance: PREDNISOLONE
     Dosage: 5 UNK, QD
     Route: 048
     Dates: start: 20130216
  4. FAMOTIDINE. [Concomitant]
     Active Substance: FAMOTIDINE
     Indication: IGA NEPHROPATHY
     Dosage: 10 MG, QD
     Route: 048
     Dates: start: 20120808
  5. FEBURIC [Concomitant]
     Active Substance: FEBUXOSTAT
     Indication: HYPERURICAEMIA
     Dosage: 10 MG, QD
     Route: 048
     Dates: start: 20150909
  6. PREDONINE [Suspect]
     Active Substance: PREDNISOLONE
     Dosage: 5 UNK, QD
     Route: 048
     Dates: start: 20161109
  7. COMELIAN [Concomitant]
     Active Substance: DILAZEP
     Indication: IGA NEPHROPATHY
     Dosage: 100 MG, TID
     Route: 048
     Dates: start: 2004
  8. PREDONINE [Suspect]
     Active Substance: PREDNISOLONE
     Dosage: 3.75 UNK, QD
     Route: 048
     Dates: start: 20160604
  9. PREDONINE [Suspect]
     Active Substance: PREDNISOLONE
     Dosage: 2.5 UNK, QD
     Route: 048
     Dates: start: 20161102
  10. CALCITRIOL. [Concomitant]
     Active Substance: CALCITRIOL
     Dosage: 0.25 MUG, QD
  11. PREDONINE [Suspect]
     Active Substance: PREDNISOLONE
     Indication: IGA NEPHROPATHY
     Dosage: 10 UNK, QD
     Route: 048
     Dates: start: 20120808
  12. ROCALTROL [Concomitant]
     Active Substance: CALCITRIOL
     Indication: OSTEOPOROSIS
     Dosage: 0.25 MUG, QD
     Route: 048
     Dates: start: 20160130
  13. OLMESARTAN MEDOXOMIL. [Concomitant]
     Active Substance: OLMESARTAN MEDOXOMIL
     Dosage: 20 MG, QD
     Route: 048
     Dates: start: 20141220

REACTIONS (1)
  - Pulmonary tuberculosis [Recovering/Resolving]

NARRATIVE: CASE EVENT DATE: 20161105
